FAERS Safety Report 17457286 (Version 1)
Quarter: 2020Q1

REPORT INFORMATION
  Report Type: Spontaneous
  Country: DE (occurrence: DE)
  Receive Date: 20200225
  Receipt Date: 20200225
  Transmission Date: 20200409
  Serious: Yes (Hospitalization)
  Sender: FDA-Public Use
  Company Number: DE-AMERICAN REGENT INC-2020000461

PATIENT
  Age: 25 Year
  Sex: Male

DRUGS (1)
  1. FERINJECT [Suspect]
     Active Substance: FERRIC CARBOXYMALTOSE
     Indication: PRODUCT USED FOR UNKNOWN INDICATION
     Dosage: 500 MILLIGRAM
     Dates: start: 201910, end: 201910

REACTIONS (2)
  - Guillain-Barre syndrome [Recovering/Resolving]
  - Miller Fisher syndrome [Recovering/Resolving]

NARRATIVE: CASE EVENT DATE: 201910
